FAERS Safety Report 6795284-9 (Version None)
Quarter: 2010Q2

REPORT INFORMATION
  Report Type: 
  Country: None (occurrence: None)
  Receive Date: 20100624
  Receipt Date: 20100624
  Transmission Date: 20101027
  Serious: No
  Sender: FDA-Public Use
  Company Number: None

PATIENT
  Sex: Female
  Weight: 48.0813 kg

DRUGS (2)
  1. FOSAMAX [Suspect]
     Dosage: 70 MG ONCE WEEKLY
  2. ALENDRONATE SODIUM [Suspect]
     Dosage: 70MG ONCE WEEKLY

REACTIONS (5)
  - EAR PAIN [None]
  - HYPOAESTHESIA ORAL [None]
  - JOINT SWELLING [None]
  - PAIN IN JAW [None]
  - TOOTH EXTRACTION [None]
